FAERS Safety Report 7890258-9 (Version None)
Quarter: 2011Q4

REPORT INFORMATION
  Report Type: 
  Country: None (occurrence: None)
  Receive Date: 20111103
  Receipt Date: 20110808
  Transmission Date: 20120403
  Serious: No
  Sender: FDA-Public Use
  Company Number: US-AMGEN-USASP2011039993

PATIENT
  Age: 51 Year
  Sex: Male
  Weight: 108.84 kg

DRUGS (15)
  1. HUMALOG [Concomitant]
  2. METFORMIN HCL [Concomitant]
     Dosage: 500 MG, UNK
  3. FISH OIL [Concomitant]
     Dosage: 1200 MG, UNK
  4. ENBREL [Suspect]
     Indication: PRODUCT USED FOR UNKNOWN INDICATION
     Dosage: 50 MG, 2 TIMES/WK
  5. SIMVASTATIN [Concomitant]
     Dosage: 80 MG, UNK
  6. AMLODIPINE [Concomitant]
     Dosage: 5 MG, UNK
  7. METHOTREXATE [Concomitant]
     Dosage: 2.5 MG, UNK
  8. XANAX [Concomitant]
     Dosage: 1 MG, UNK
  9. CALCIUM AND VIT D [Concomitant]
  10. ARTHROTEC [Concomitant]
     Dosage: 50 UNK, UNK
  11. GLYBURIDE [Concomitant]
     Dosage: 1.25 MG, UNK
  12. CARVEDILOL [Concomitant]
     Dosage: 6.25 MG, UNK
  13. ASPIRIN [Concomitant]
     Dosage: 81 MG, UNK
  14. LANTUS [Concomitant]
     Dosage: 100 ML, UNK
  15. LOSARTAN POTASSIUM [Concomitant]
     Dosage: 100 MG, UNK

REACTIONS (1)
  - HEADACHE [None]
